FAERS Safety Report 5731516-3 (Version None)
Quarter: 2008Q2

REPORT INFORMATION
  Report Type: 
  Country: None (occurrence: None)
  Receive Date: 20080508
  Receipt Date: 20080428
  Transmission Date: 20081010
  Serious: Yes (Other)
  Sender: FDA-Public Use
  Company Number: FR-JNJFOC-20071110907

PATIENT
  Age: 48 Year
  Sex: Female

DRUGS (18)
  1. REMICADE [Suspect]
     Route: 042
  2. REMICADE [Suspect]
     Dosage: 3-4 DOSES
     Route: 042
  3. REMICADE [Suspect]
     Dosage: 3-4 DOSES
     Route: 042
  4. REMICADE [Suspect]
     Indication: SARCOIDOSIS
     Dosage: 3-4 DOSES
     Route: 042
  5. ENBREL [Suspect]
     Indication: SARCOIDOSIS
  6. METHOTREXATE [Concomitant]
  7. METHOTREXATE [Concomitant]
  8. CORTANCYL [Concomitant]
  9. METHOTREXATE SODIUM [Concomitant]
     Route: 048
  10. METHOTREXATE SODIUM [Concomitant]
     Route: 048
  11. FOLIC ACID [Concomitant]
     Route: 048
  12. DIFFU K [Concomitant]
     Route: 048
  13. ACTONEL [Concomitant]
     Route: 048
  14. STILNOX [Concomitant]
     Route: 048
  15. DIANTALVIC [Concomitant]
     Dosage: 1-2 TABLETS
     Route: 048
  16. LYSANXIA [Concomitant]
     Route: 048
  17. DERMOVAL [Concomitant]
     Route: 003
  18. SOLIAN [Concomitant]
     Route: 048

REACTIONS (1)
  - TOXIC SKIN ERUPTION [None]
